FAERS Safety Report 9445922 (Version 3)
Quarter: 2013Q4

REPORT INFORMATION
  Report Type: Spontaneous
  Country: JP (occurrence: JP)
  Receive Date: 20130807
  Receipt Date: 20131005
  Transmission Date: 20140711
  Serious: Yes (Hospitalization, Disabling, Other)
  Sender: FDA-Public Use
  Company Number: JP-B.I. PHARMACEUTICALS,INC./RIDGEFIELD-2013-BI-23584NB

PATIENT
  Age: 77 Year
  Sex: Male
  Weight: 63.8 kg

DRUGS (11)
  1. PRADAXA [Suspect]
     Indication: ATRIAL FIBRILLATION
     Dosage: 220 MG
     Route: 048
     Dates: start: 20130514, end: 20130606
  2. BUSCOPAN [Suspect]
     Indication: ENDOSCOPY LARGE BOWEL
     Dosage: 20 MG
     Route: 030
     Dates: start: 20130613, end: 20130613
  3. CLARITH/CLARITHROMYCIN [Concomitant]
     Indication: URINARY TRACT INFECTION
     Dosage: 200 MG
     Route: 048
     Dates: start: 20130618, end: 20130727
  4. CINAL/ASCORBIC ACID_CALCIUM PANTOTHENATE [Concomitant]
     Indication: BLOOD URINE PRESENT
     Dosage: 3 G
     Route: 048
     Dates: start: 20130618, end: 20130727
  5. LOXONIN / LOXOPROFEN SODIUM HYDRATE [Concomitant]
     Indication: PAIN
     Route: 048
  6. FLIVAS / NAFTOPIDIL [Concomitant]
     Indication: BENIGN PROSTATIC HYPERPLASIA
     Dosage: 50 MG
     Route: 048
     Dates: start: 20130619
  7. EVIPROSTAT / PIPSISSEWA EXTRACT_JAPANESE ASPEN EXTRACT COMBINED DRUG [Concomitant]
     Indication: BENIGN PROSTATIC HYPERPLASIA
     Dosage: DAILY DOSE: 3DF
     Route: 048
     Dates: start: 20130619
  8. ADONA / CARBAZOCHROME SODIUM SULFONATE HYDRATE [Concomitant]
     Indication: BLOOD URINE PRESENT
     Dosage: 90 MG
     Route: 048
     Dates: start: 20130711, end: 20130727
  9. MIYA BM / CLOSTRIDIUM BUTYRICUM [Concomitant]
     Indication: PSEUDOMEMBRANOUS COLITIS
     Dosage: DAILY DOSE: 6DF
     Route: 048
     Dates: start: 20130727
  10. ZOSYN / TAZOBACTAM SODIUM_PIPERACILLIN SODIUM [Concomitant]
     Indication: URINARY TRACT INFECTION
     Dosage: 9 G
     Route: 042
     Dates: start: 20130727, end: 20130804
  11. RADICUT/EDARAVONE [Concomitant]
     Dosage: 60 MG
     Route: 042
     Dates: start: 20130513, end: 20130526

REACTIONS (12)
  - Haematochezia [Unknown]
  - Haemorrhoids [Unknown]
  - Urinary retention [Not Recovered/Not Resolved]
  - Melaena [Not Recovered/Not Resolved]
  - Gastric ulcer [Not Recovered/Not Resolved]
  - Benign prostatic hyperplasia [Unknown]
  - Prostate cancer [Unknown]
  - Blood pressure increased [Recovered/Resolved]
  - Diverticulum intestinal [Unknown]
  - Large intestine polyp [Unknown]
  - Large intestine polyp [Unknown]
  - Oedema [Unknown]
